FAERS Safety Report 24142830 (Version 4)
Quarter: 2025Q3

REPORT INFORMATION
  Report Type: Report from Study
  Country: US (occurrence: US)
  Receive Date: 20240726
  Receipt Date: 20250902
  Transmission Date: 20251020
  Serious: Yes (Death, Hospitalization, Other)
  Sender: ALEXION PHARMACEUTICALS
  Company Number: 2024A167171

PATIENT
  Age: 70 Year
  Sex: Male
  Weight: 108 kg

DRUGS (11)
  1. DOCETAXEL [Suspect]
     Active Substance: DOCETAXEL
     Indication: Prostate cancer
     Dosage: 75 MILLIGRAM/SQ. METER, Q3W
     Dates: start: 20230914, end: 20230914
  2. DOCETAXEL [Suspect]
     Active Substance: DOCETAXEL
     Dosage: 75 MILLIGRAM/SQ. METER, Q3W
     Dates: start: 20231005, end: 20231005
  3. VUDALIMAB [Suspect]
     Active Substance: VUDALIMAB
     Indication: Prostate cancer
     Dosage: 10 MG/KG (TOTAL DOSE:1147 MG), ONCE EVERY TWO WEEKS; INTRAVENOUS USE
     Dates: start: 20230914, end: 20230914
  4. VUDALIMAB [Suspect]
     Active Substance: VUDALIMAB
     Dosage: 10 MG/KG, EVERY 2 WEEKS (TOTAL DOSE:1147 MG); INTRAVENOUS USE
     Dates: start: 20230928, end: 20230928
  5. PRILOSEC [Concomitant]
     Active Substance: OMEPRAZOLE MAGNESIUM
  6. DENOSUMAB [Concomitant]
     Active Substance: DENOSUMAB
     Route: 065
  7. LOTREL [Concomitant]
     Active Substance: AMLODIPINE BESYLATE\BENAZEPRIL HYDROCHLORIDE
     Route: 065
  8. LIPITOR [Concomitant]
     Active Substance: ATORVASTATIN CALCIUM
     Route: 065
  9. ZYLOPRIM [Concomitant]
     Active Substance: ALLOPURINOL
  10. NORCO [Concomitant]
     Active Substance: ACETAMINOPHEN\HYDROCODONE BITARTRATE
  11. TYLENOL [Concomitant]
     Active Substance: ACETAMINOPHEN

REACTIONS (6)
  - Death [Fatal]
  - Embolism [Recovered/Resolved with Sequelae]
  - Hypoxia [Unknown]
  - Disease progression [Unknown]
  - Nephrolithiasis [Unknown]
  - Diverticulitis [Unknown]

NARRATIVE: CASE EVENT DATE: 20231026
